FAERS Safety Report 10205635 (Version 2)
Quarter: 2014Q2

REPORT INFORMATION
  Report Type: Report from Study
  Country: DE (occurrence: DE)
  Receive Date: 20140529
  Receipt Date: 20140617
  Transmission Date: 20141212
  Serious: Yes (Hospitalization)
  Sender: FDA-Public Use
  Company Number: PHHY2014DE064401

PATIENT
  Age: 61 Year
  Sex: Male
  Weight: 82 kg

DRUGS (4)
  1. ULTIBRO BREEZHALER [Suspect]
     Indication: CHRONIC OBSTRUCTIVE PULMONARY DISEASE
     Dosage: 1 DF, QD
     Route: 055
     Dates: start: 20140210, end: 20140310
  2. PREDNISOLON GALEN [Concomitant]
     Indication: CHRONIC OBSTRUCTIVE PULMONARY DISEASE
     Dosage: UNK
     Dates: end: 20140310
  3. AVALOX [Concomitant]
     Dosage: UNK
     Dates: start: 20140210, end: 20140217
  4. VENTOLAIR [Concomitant]
     Indication: CHRONIC OBSTRUCTIVE PULMONARY DISEASE
     Dosage: UNK
     Dates: end: 20140310

REACTIONS (5)
  - Coronary artery disease [Recovering/Resolving]
  - Pain in extremity [Recovering/Resolving]
  - Chest discomfort [Recovering/Resolving]
  - Alanine aminotransferase increased [Unknown]
  - C-reactive protein increased [Unknown]
